FAERS Safety Report 7668020 (Version 6)
Quarter: 2013Q4

REPORT INFORMATION
  Report Type: Spontaneous
  Country: US (occurrence: US)
  Receive Date: 20101115
  Receipt Date: 20131212
  Transmission Date: 20140711
  Serious: Yes (Hospitalization, Other)
  Sender: FDA-Public Use
  Company Number: US-BAYER-201040814NA

PATIENT
  Age: 17 Year
  Sex: Female
  Weight: 51.7 kg

DRUGS (12)
  1. YAZ [Suspect]
     Indication: CONTRACEPTION
     Dosage: ONE MONTH SUPPLY OF SAMPLES IN 2007
     Route: 048
     Dates: start: 200707, end: 200909
  2. YAZ [Suspect]
     Indication: ACNE
  3. YAZ [Suspect]
     Indication: MENSTRUAL CYCLE MANAGEMENT
  4. NEXIUM [Concomitant]
  5. I.V. SOLUTIONS [Concomitant]
     Indication: SYNCOPE
     Dosage: UNK
     Dates: start: 200806
  6. MIRALAX [Concomitant]
     Dosage: UNK
  7. RESPIRATORY SYSTEM [Concomitant]
     Route: 048
  8. PRILOSEC [Concomitant]
     Route: 048
  9. LAXATIVES [Concomitant]
  10. ZYRTEC [Concomitant]
     Dosage: 10 MG, QD
     Route: 048
  11. ACIPHEX [Concomitant]
     Dosage: 20 MG, QD
     Route: 048
  12. CARAFATE [Concomitant]

REACTIONS (3)
  - Gallbladder injury [None]
  - Cholecystitis chronic [Unknown]
  - Biliary dyskinesia [None]
